FAERS Safety Report 6935807-X (Version None)
Quarter: 2010Q3

REPORT INFORMATION
  Report Type: 
  Country: None (occurrence: None)
  Receive Date: 20100823
  Receipt Date: 20100809
  Transmission Date: 20110219
  Serious: Yes (Other)
  Sender: FDA-Public Use
  Company Number: AT-ELI_LILLY_AND_COMPANY-AT201008001951

PATIENT
  Age: 54 Year
  Sex: Male
  Weight: 76.2 kg

DRUGS (7)
  1. CYMBALTA [Suspect]
     Indication: DEPRESSION
     Dosage: 30 MG, DAILY (1/D)
     Route: 048
     Dates: start: 20100709, end: 20100730
  2. CYMBALTA [Suspect]
     Dosage: 90 MG, DAILY (1/D)
     Route: 048
     Dates: start: 20100709, end: 20100730
  3. ZYPREXA [Suspect]
     Indication: MAJOR DEPRESSION
     Dosage: 2.5 MG, DAILY (1/D)
     Route: 048
     Dates: start: 20100730
  4. OXYBUTYNIN [Concomitant]
     Indication: BENIGN PROSTATIC HYPERPLASIA
     Dosage: UNK UNK, 2/D
     Route: 048
     Dates: start: 20100718
  5. TAMSULOSIN HCL [Concomitant]
     Indication: BENIGN PROSTATIC HYPERPLASIA
     Dosage: 0.4 MG, DAILY (1/D)
     Route: 048
  6. LORAZEPAM [Concomitant]
     Indication: SLEEP DISORDER
     Dosage: 2 MG, DAILY (1/D)
     Route: 048
     Dates: start: 20100708
  7. TRAZODONE HCL [Concomitant]
     Indication: SLEEP DISORDER
     Dosage: 150 MG, DAILY (1/D)
     Route: 048
     Dates: start: 20100601

REACTIONS (5)
  - AKATHISIA [None]
  - DISORIENTATION [None]
  - DRY MOUTH [None]
  - MEMORY IMPAIRMENT [None]
  - PSYCHOTIC DISORDER [None]
